FAERS Safety Report 11702541 (Version 1)
Quarter: 2015Q4

REPORT INFORMATION
  Report Type: Spontaneous
  Country: US (occurrence: US)
  Receive Date: 20151105
  Receipt Date: 20151105
  Transmission Date: 20160304
  Serious: No
  Sender: FDA-Public Use
  Company Number: US-BAYER-2015-461281

PATIENT
  Age: 11 Year
  Sex: Female
  Weight: 36.28 kg

DRUGS (2)
  1. CLARITIN REDITABS [Suspect]
     Active Substance: LORATADINE
     Indication: SEASONAL ALLERGY
     Dosage: 1 DF, AFTER MEALS
     Route: 048
     Dates: start: 2014
  2. CLARITIN REDITABS [Suspect]
     Active Substance: LORATADINE
     Indication: SEASONAL ALLERGY
     Dosage: 2 DF, ONCE
     Route: 048
     Dates: start: 20151102, end: 20151102

REACTIONS (1)
  - Product use issue [None]

NARRATIVE: CASE EVENT DATE: 20151102
